FAERS Safety Report 7520495-4 (Version None)
Quarter: 2011Q2

REPORT INFORMATION
  Report Type: 
  Country: None (occurrence: None)
  Receive Date: 20110602
  Receipt Date: 20110519
  Transmission Date: 20111010
  Serious: Yes (Other)
  Sender: FDA-Public Use
  Company Number: US-ELI_LILLY_AND_COMPANY-US201008005245

PATIENT
  Sex: Female

DRUGS (4)
  1. FORTEO [Suspect]
     Indication: OSTEOPOROSIS
     Dosage: 20 UG, DAILY (1/D)
     Dates: start: 20091101
  2. FORTEO [Suspect]
     Dosage: 20 UG, DAILY (1/D)
  3. FORTEO [Suspect]
     Dosage: 20 UG, QD
  4. FORTEO [Suspect]
     Dosage: 20 UG, QD

REACTIONS (10)
  - ARTHRITIS [None]
  - BURNING SENSATION [None]
  - ARTHROPATHY [None]
  - KNEE ARTHROPLASTY [None]
  - LIGAMENT DISORDER [None]
  - LIMB DISCOMFORT [None]
  - SYNOVIAL CYST [None]
  - ARTHRALGIA [None]
  - FALL [None]
  - PAIN [None]
